FAERS Safety Report 5882512-7 (Version None)
Quarter: 2008Q3

REPORT INFORMATION
  Report Type: 
  Country: None (occurrence: None)
  Receive Date: 20080913
  Receipt Date: 20080805
  Transmission Date: 20090109
  Serious: No
  Sender: FDA-Public Use
  Company Number: US-ABBOTT-08P-163-0469029-00

PATIENT
  Sex: Female
  Weight: 48.124 kg

DRUGS (7)
  1. HUMIRA [Suspect]
     Indication: RHEUMATOID ARTHRITIS
     Route: 058
     Dates: start: 20080702, end: 20080716
  2. HYDROXYCHLOROQUINE [Concomitant]
     Indication: RHEUMATOID ARTHRITIS
     Dosage: 1.5-200MG TABS DAILY
     Route: 048
  3. METHOTREXATE [Concomitant]
     Indication: RHEUMATOID ARTHRITIS
     Dosage: 2.5 MG-6 TABS WEEKLY
     Route: 048
     Dates: start: 19960101
  4. VITAMIN TAB [Concomitant]
     Indication: MINERAL SUPPLEMENTATION
     Route: 048
     Dates: start: 19960101
  5. OS-CAL [Concomitant]
     Indication: VITAMIN SUPPLEMENTATION
     Route: 048
     Dates: start: 19960101
  6. VITAMIDYNE A AND D [Concomitant]
     Indication: MINERAL SUPPLEMENTATION
     Route: 048
     Dates: start: 20050101
  7. LEUCOVORIN CALCIUM [Concomitant]
     Indication: VITAMIN SUPPLEMENTATION
     Dosage: 3 TABS WEEKLY
     Route: 048
     Dates: start: 20060101

REACTIONS (2)
  - HYPERSENSITIVITY [None]
  - URTICARIA [None]
